FAERS Safety Report 5145181-X (Version None)
Quarter: 2006Q4

REPORT INFORMATION
  Report Type: 
  Country: None (occurrence: None)
  Receive Date: 20061107
  Receipt Date: 20061031
  Transmission Date: 20070319
  Serious: Yes (Other)
  Sender: FDA-Public Use
  Company Number: 2006UW21114

PATIENT
  Age: 59 Year
  Sex: Female

DRUGS (10)
  1. SYMBICORT [Suspect]
     Route: 055
  2. ACCURETIC [Concomitant]
  3. CALCIUM [Concomitant]
  4. CELEXA [Concomitant]
  5. EVENING PRIMROSE OIL [Concomitant]
  6. NPH INSULIN [Concomitant]
  7. MULTIVITAMIN WITH MINERALS [Concomitant]
  8. SALMON OIL [Concomitant]
  9. SYNTHROID [Concomitant]
  10. ASCORBIC ACID [Concomitant]

REACTIONS (6)
  - AGGRESSION [None]
  - DIABETES MELLITUS [None]
  - DRUG WITHDRAWAL SYNDROME [None]
  - INCREASED APPETITE [None]
  - SOMNOLENCE [None]
  - TREMOR [None]
